APPROVED DRUG PRODUCT: NICOTINE POLACRILEX
Active Ingredient: NICOTINE POLACRILEX
Strength: EQ 2MG BASE
Dosage Form/Route: TROCHE/LOZENGE;ORAL
Application: A213266 | Product #001
Applicant: AUROBINDO PHARMA LTD
Approved: Aug 3, 2021 | RLD: No | RS: No | Type: OTC